FAERS Safety Report 18081123 (Version 1)
Quarter: 2020Q3

REPORT INFORMATION
  Report Type: Report from Study
  Country: RU (occurrence: RU)
  Receive Date: 20200728
  Receipt Date: 20200728
  Transmission Date: 20201103
  Serious: Yes (Hospitalization)
  Sender: FDA-Public Use
  Company Number: RU-PFIZER INC-2015108491

PATIENT
  Age: 61 Year
  Sex: Female
  Weight: 86 kg

DRUGS (3)
  1. PACLITAXEL. [Concomitant]
     Active Substance: PACLITAXEL
     Indication: BREAST CANCER METASTATIC
     Dosage: 159 MG (80 MG/M2), ON DAYS 1, 8, AND 15 OF EACH 28?DAY CYCLE
     Route: 042
     Dates: start: 20141027, end: 20150202
  2. TRASTUZUMAB. [Suspect]
     Active Substance: TRASTUZUMAB
     Indication: BREAST CANCER METASTATIC
     Dosage: 4 MG/KG (344 MG), CYCLIC
     Route: 042
     Dates: start: 20141027
  3. TRASTUZUMAB. [Suspect]
     Active Substance: TRASTUZUMAB
     Dosage: 2 MG/KG (172 MG), CYCLIC
     Route: 042
     Dates: start: 20150209, end: 20150209

REACTIONS (1)
  - Atrial fibrillation [Unknown]

NARRATIVE: CASE EVENT DATE: 20150219
